FAERS Safety Report 21657640 (Version 3)
Quarter: 2022Q4

REPORT INFORMATION
  Report Type: Spontaneous
  Country: CN (occurrence: CN)
  Receive Date: 20221129
  Receipt Date: 20221220
  Transmission Date: 20230112
  Serious: Yes (Death)
  Sender: FDA-Public Use
  Company Number: CN-PFIZER INC-202201329898

PATIENT
  Age: 78 Year
  Sex: Male

DRUGS (6)
  1. LORBRENA [Suspect]
     Active Substance: LORLATINIB
     Indication: Lung neoplasm malignant
     Dosage: 100 MG, DAILY
     Route: 048
     Dates: start: 20221116, end: 20221117
  2. PIPERACILLIN SODIUM\TAZOBACTAM SODIUM [Concomitant]
     Active Substance: PIPERACILLIN SODIUM\TAZOBACTAM SODIUM
     Indication: Anti-infective therapy
     Dosage: UNK
     Dates: start: 202211
  3. TAN RE QING [Concomitant]
     Indication: Cough
     Dosage: UNK
     Dates: start: 202211
  4. TAN RE QING [Concomitant]
     Indication: Productive cough
  5. ACETYLCYSTEINE [Concomitant]
     Active Substance: ACETYLCYSTEINE
     Indication: Cough
     Dosage: UNK
     Dates: start: 202211
  6. ACETYLCYSTEINE [Concomitant]
     Active Substance: ACETYLCYSTEINE
     Indication: Productive cough

REACTIONS (16)
  - Respiratory failure [Fatal]
  - Circulatory collapse [Fatal]
  - Cardiogenic shock [Fatal]
  - Septic shock [Fatal]
  - Atrial fibrillation [Fatal]
  - Hypoproteinaemia [Fatal]
  - Electrolyte imbalance [Fatal]
  - Neoplasm progression [Fatal]
  - Pneumonia [Fatal]
  - Atelectasis [Fatal]
  - Pneumothorax [Fatal]
  - Arteriosclerosis coronary artery [Fatal]
  - Restlessness [Unknown]
  - Mania [Unknown]
  - Agitation [Unknown]
  - Prescription drug used without a prescription [Unknown]

NARRATIVE: CASE EVENT DATE: 20221101
